FAERS Safety Report 11100427 (Version 1)
Quarter: 2015Q2

REPORT INFORMATION
  Report Type: Spontaneous
  Country: GB (occurrence: None)
  Receive Date: 20150506
  Receipt Date: 20150506
  Transmission Date: 20150821
  Serious: Yes (Life-Threatening, Hospitalization, Other)
  Sender: FDA-Public Use
  Company Number: CL-628-2015

PATIENT
  Age: 47 Year
  Sex: Female

DRUGS (8)
  1. ZOLPIDEM [Concomitant]
     Active Substance: ZOLPIDEM\ZOLPIDEM TARTRATE
  2. HALOPERIDOL UNK [Suspect]
     Active Substance: HALOPERIDOL
     Indication: AGITATION
     Route: 030
  3. HALOPERIDOL UNK [Suspect]
     Active Substance: HALOPERIDOL
     Indication: RESTLESSNESS
     Route: 030
  4. INSULIN [Concomitant]
     Active Substance: INSULIN NOS
  5. NIFEDIPINE. [Concomitant]
     Active Substance: NIFEDIPINE
  6. VENLAFAXINE [Concomitant]
     Active Substance: VENLAFAXINE HYDROCHLORIDE
  7. CLONAZEPAM. [Concomitant]
     Active Substance: CLONAZEPAM
  8. MIDAZOLAM [Concomitant]
     Active Substance: MIDAZOLAM\MIDAZOLAM HYDROCHLORIDE

REACTIONS (1)
  - Angioedema [None]
